FAERS Safety Report 10059847 (Version 3)
Quarter: 2014Q2

REPORT INFORMATION
  Report Type: Spontaneous
  Country: JP (occurrence: JP)
  Receive Date: 20140404
  Receipt Date: 20140623
  Transmission Date: 20141212
  Serious: Yes (Hospitalization)
  Sender: FDA-Public Use
  Company Number: JP-UCBSA-116924

PATIENT
  Age: 21 Year
  Sex: Male

DRUGS (4)
  1. E KEPPRA [Suspect]
     Indication: TEMPORAL LOBE EPILEPSY
     Dosage: ABOUT 1000 MG/DAY
     Route: 048
     Dates: start: 201402, end: 2014
  2. E KEPPRA [Suspect]
     Dosage: 3000 MG, ONCE DAILY (QD)
     Route: 048
     Dates: start: 2014, end: 20140324
  3. RIVOTRIL [Concomitant]
     Dosage: DAILY DOSE: 1 MG
     Route: 048
  4. CARBAMAZEPINE [Concomitant]
     Dosage: UNK
     Route: 048

REACTIONS (1)
  - Convulsion [Recovered/Resolved]
